FAERS Safety Report 25887081 (Version 1)
Quarter: 2025Q4

REPORT INFORMATION
  Report Type: Spontaneous
  Country: US (occurrence: US)
  Receive Date: 20251006
  Receipt Date: 20251006
  Transmission Date: 20260117
  Serious: Yes (Other)
  Sender: ELI LILLY AND COMPANY
  Company Number: US-ELI_LILLY_AND_COMPANY-US202510000576

PATIENT
  Age: 75 Year
  Sex: Female

DRUGS (3)
  1. KISUNLA [Suspect]
     Active Substance: DONANEMAB-AZBT
     Indication: Dementia Alzheimer^s type
     Dosage: UNK UNK, UNKNOWN (1ST INFUSION)
     Route: 065
     Dates: start: 20250805
  2. KISUNLA [Suspect]
     Active Substance: DONANEMAB-AZBT
     Dosage: UNK UNK, UNKNOWN (2ND INFUSION)
     Route: 065
     Dates: start: 20250902
  3. ARIMIDEX [Concomitant]
     Active Substance: ANASTROZOLE
     Indication: Intraductal proliferative breast lesion
     Dosage: UNK UNK, UNKNOWN
     Route: 065
     Dates: start: 20250102

REACTIONS (1)
  - Corneal graft rejection [Not Recovered/Not Resolved]

NARRATIVE: CASE EVENT DATE: 20250821
